FAERS Safety Report 5000482-0 (Version None)
Quarter: 2006Q2

REPORT INFORMATION
  Report Type: 
  Country: None (occurrence: None)
  Receive Date: 20060512
  Receipt Date: 20050823
  Transmission Date: 20061013
  Serious: Yes (Other)
  Sender: FDA-Public Use
  Company Number: PHEH2005US09321

PATIENT
  Age: 56 Year
  Sex: Male

DRUGS (1)
  1. LAMISIL [Suspect]
     Dosage: 250 MG, UNK
     Route: 048
     Dates: start: 20030801

REACTIONS (4)
  - AGEUSIA [None]
  - DYSGEUSIA [None]
  - HYPOACUSIS [None]
  - HYPOSMIA [None]
